FAERS Safety Report 8137966-2 (Version None)
Quarter: 2012Q1

REPORT INFORMATION
  Report Type: 
  Country: None (occurrence: None)
  Receive Date: 20120215
  Receipt Date: 20120209
  Transmission Date: 20120608
  Serious: Yes (Death, Life-Threatening, Hospitalization)
  Sender: FDA-Public Use
  Company Number: BE-GENZYME-CLOF-1001988

PATIENT
  Sex: Female
  Weight: 74 kg

DRUGS (20)
  1. ISOBETADINE [Concomitant]
     Indication: SKIN LESION
     Dosage: UNK
     Route: 061
     Dates: start: 20111215, end: 20120110
  2. FOLIC ACID [Concomitant]
     Indication: SUPPLEMENTATION THERAPY
     Dosage: 5 MG, UNK
     Route: 042
     Dates: start: 20111222, end: 20120110
  3. TRAVATAN [Concomitant]
     Indication: PROPHYLAXIS
     Dosage: UNK
     Route: 061
     Dates: start: 20111223, end: 20111227
  4. HALDOL [Concomitant]
     Indication: SEDATION
     Dosage: 2.5-5 MG (1)
     Route: 042
     Dates: start: 20111226, end: 20111227
  5. PERIO AID COLUTORIO [Concomitant]
     Indication: PROPHYLAXIS
     Dosage: 20 ML, UNK
     Route: 048
     Dates: start: 20111012, end: 20120110
  6. KONAKION [Concomitant]
     Indication: SUPPLEMENTATION THERAPY
     Dosage: 20 MG, UNK
     Route: 042
     Dates: start: 20111226, end: 20111226
  7. AMSACRINE [Concomitant]
     Indication: ACUTE MYELOID LEUKAEMIA
     Dosage: 203 MG, QD
     Route: 042
     Dates: start: 20111217, end: 20111219
  8. XANAX [Concomitant]
     Indication: CONFUSIONAL STATE
     Dosage: 0.5 MG, UNK
     Route: 048
     Dates: start: 20111225, end: 20111227
  9. SERTRALINE HYDROCHLORIDE [Concomitant]
     Indication: DEPRESSION
     Dosage: 50 MG, UNK
     Route: 048
     Dates: end: 20111227
  10. VORICONAZOLE [Concomitant]
     Indication: ASPERGILLOSIS
     Dosage: UNK
     Route: 042
     Dates: start: 20111103, end: 20120104
  11. ZANTAC [Concomitant]
     Indication: PROPHYLAXIS
     Dosage: 50 MG, UNK
     Route: 042
     Dates: start: 20111222, end: 20120110
  12. ASCORBIC ACID [Concomitant]
     Indication: SUPPLEMENTATION THERAPY
     Dosage: 1 G, UNK
     Route: 042
     Dates: start: 20111226, end: 20111226
  13. MICONAZOLE [Concomitant]
     Indication: SKIN LESION
     Dosage: UNK
     Route: 061
     Dates: start: 20111222, end: 20120103
  14. FUCIDINE CAP [Concomitant]
     Indication: SKIN LESION
     Dosage: UNK
     Route: 061
     Dates: start: 20111117, end: 20120110
  15. MEROPENEM [Concomitant]
     Indication: FEBRILE NEUTROPENIA
     Dosage: 1 G, UNK
     Route: 042
     Dates: start: 20111223, end: 20120110
  16. EVOLTRA [Suspect]
     Indication: ACUTE MYELOID LEUKAEMIA
     Dosage: 16.9 MG, QD
     Route: 042
     Dates: start: 20111214, end: 20111218
  17. CYTARABINE [Concomitant]
     Indication: ACUTE MYELOID LEUKAEMIA
     Dosage: 3380 MG, QD
     Route: 042
     Dates: start: 20111214, end: 20111219
  18. ALBUMIN (HUMAN) [Concomitant]
     Indication: RENAL FAILURE ACUTE
     Dosage: 20 G, UNK
     Route: 042
     Dates: start: 20111220, end: 20120102
  19. BUMETANIDE [Concomitant]
     Indication: FLUID OVERLOAD
     Dosage: 2-6 MG, UNK
     Route: 042
     Dates: start: 20111223, end: 20111228
  20. VANCOCIN HYDROCHLORIDE [Concomitant]
     Indication: SEPSIS
     Dosage: 0.5-1 G, UNK
     Route: 042
     Dates: start: 20111224, end: 20111227

REACTIONS (3)
  - ILEUS PARALYTIC [None]
  - RESPIRATORY FAILURE [None]
  - ENCEPHALITIS [None]
